FAERS Safety Report 8326145-1 (Version None)
Quarter: 2012Q2

REPORT INFORMATION
  Report Type: 
  Country: None (occurrence: None)
  Receive Date: 20120501
  Receipt Date: 20110525
  Transmission Date: 20120825
  Serious: No
  Sender: FDA-Public Use
  Company Number: US-SANOFI-AVENTIS-2011SA034816

PATIENT
  Age: 68 Year
  Sex: Female

DRUGS (2)
  1. APIDRA [Suspect]
     Dosage: DOSE:4 UNIT(S)
     Route: 058
     Dates: start: 20110520
  2. LANTUS [Suspect]
     Dosage: DOSE:12 UNIT(S)
     Route: 058
     Dates: start: 20110520

REACTIONS (5)
  - HOT FLUSH [None]
  - BLOOD GLUCOSE DECREASED [None]
  - VISION BLURRED [None]
  - BLOOD GLUCOSE INCREASED [None]
  - ASTHENIA [None]
